FAERS Safety Report 4703764-2 (Version None)
Quarter: 2005Q2

REPORT INFORMATION
  Report Type: 
  Country: None (occurrence: None)
  Receive Date: 20050628
  Receipt Date: 20050620
  Transmission Date: 20051028
  Serious: Yes (Hospitalization)
  Sender: FDA-Public Use
  Company Number: STA-AE-05-022

PATIENT
  Age: 59 Year
  Sex: Male

DRUGS (2)
  1. PROPYLTHIOURACIL [Suspect]
     Dosage: 100 MG 3 TIMES DAILY
  2. PROPRANOLOL [Suspect]
     Dosage: 20 MG TWICE A DAY

REACTIONS (22)
  - ALANINE AMINOTRANSFERASE INCREASED [None]
  - AORTIC ATHEROSCLEROSIS [None]
  - ASPARTATE AMINOTRANSFERASE INCREASED [None]
  - BLOOD CREATININE INCREASED [None]
  - BLOOD PRESSURE SYSTOLIC INCREASED [None]
  - BLOOD UREA INCREASED [None]
  - COLITIS ISCHAEMIC [None]
  - COLONIC POLYP [None]
  - DIARRHOEA [None]
  - GASTRITIS EROSIVE [None]
  - GASTROINTESTINAL EROSION [None]
  - HAEMOGLOBIN DECREASED [None]
  - HYPERAEMIA [None]
  - HYPERTHYROIDISM [None]
  - INTESTINAL HAEMORRHAGE [None]
  - LARGE INTESTINAL ULCER [None]
  - MESENTERIC OCCLUSION [None]
  - MUCOSAL DRYNESS [None]
  - OEDEMA [None]
  - REPERFUSION INJURY [None]
  - SKIN TURGOR DECREASED [None]
  - WEIGHT DECREASED [None]
